FAERS Safety Report 10244508 (Version 2)
Quarter: 2014Q3

REPORT INFORMATION
  Report Type: Spontaneous
  Country: AT (occurrence: AT)
  Receive Date: 20140618
  Receipt Date: 20140725
  Transmission Date: 20150326
  Serious: Yes (Other)
  Sender: FDA-Public Use
  Company Number: AT-CELGENEUS-009-21660-14061136

PATIENT
  Age: 75 Year
  Sex: Male
  Weight: 100 kg

DRUGS (4)
  1. LOVMAX [Concomitant]
     Indication: PULMONARY EMBOLISM
     Dosage: 200 MILLIGRAM
     Route: 058
  2. GEMCITABINE [Concomitant]
     Active Substance: GEMCITABINE\GEMCITABINE HYDROCHLORIDE
     Indication: PANCREATIC CARCINOMA METASTATIC
     Route: 065
  3. LOUTEN [Concomitant]
     Indication: DIABETES MELLITUS
     Dosage: 8
     Route: 058
  4. ABRAXANE [Suspect]
     Active Substance: PACLITAXEL
     Indication: PANCREATIC CARCINOMA METASTATIC
     Route: 041

REACTIONS (1)
  - Delirium [Recovered/Resolved]

NARRATIVE: CASE EVENT DATE: 20140501
